FAERS Safety Report 9193471 (Version 2)
Quarter: 2013Q2

REPORT INFORMATION
  Report Type: Spontaneous
  Country: US (occurrence: None)
  Receive Date: 20120703
  Receipt Date: 20121031
  Transmission Date: 20140414
  Serious: Yes (Other)
  Sender: FDA-Public Use
  Company Number: PHEH2012US006498

PATIENT
  Age: 59 Year
  Sex: Female
  Weight: 72.6 kg

DRUGS (15)
  1. GILENYA (FTY) CAPSULE, 0.5MG [Suspect]
     Indication: MULTIPLE SCLEROSIS
     Route: 048
     Dates: start: 201112
  2. LEXAPRO (ESCITALOPRAM OXALATE) [Concomitant]
  3. ABILIFY (ARIPIPRAZOLE) [Concomitant]
  4. ATENOLOL (ATENOLOL) [Concomitant]
  5. ENABLEX (DARIFENACIN HYDROBROMIDE) [Concomitant]
  6. ASPIRIN BUFFERED (ACETYLSALICYLIC ACID) [Concomitant]
  7. LISINOPRIL W/HYDROCHLOROTHIAZIDE (HYDROCHLOROTHIAZIDE, LISINOPRIL) [Concomitant]
  8. ZOCOR ^DIECKMANN^ (SIMVASTATIN) [Concomitant]
  9. NORVASC /DEN/ (AMLODIPINE BESILATE) [Concomitant]
  10. REBIF /NET/ (INTERFERON BETA) [Concomitant]
  11. SONATA (ZALEPLON) [Concomitant]
  12. SUDAFED (PSEUDOEPHEDRINE HYDROCHLORIDE) [Concomitant]
  13. MOBIC (MELOXICAM) [Concomitant]
  14. ZANAFLEX (TIZANIDINE HYDROCHLORIDE) [Concomitant]
  15. FLONASE (FLUTICASONE PROPIONATE) [Concomitant]

REACTIONS (13)
  - Hypersensitivity [None]
  - Hypertension [None]
  - Sinus headache [None]
  - Insomnia [None]
  - Multiple sclerosis [None]
  - Dizziness [None]
  - Heart rate decreased [None]
  - Rash [None]
  - Asthenia [None]
  - Memory impairment [None]
  - Pain in extremity [None]
  - Fatigue [None]
  - Depressed mood [None]
